FAERS Safety Report 16068519 (Version 2)
Quarter: 2019Q3

REPORT INFORMATION
  Report Type: Spontaneous
  Country: US (occurrence: US)
  Receive Date: 20190313
  Receipt Date: 20190703
  Transmission Date: 20191004
  Serious: Yes (Hospitalization)
  Sender: FDA-Public Use
  Company Number: US-VERTEX PHARMACEUTICALS-2019-002086

PATIENT
  Age: 18 Year
  Sex: Male

DRUGS (27)
  1. TOBRAMYCIN. [Concomitant]
     Active Substance: TOBRAMYCIN
  2. FLOVENT [Concomitant]
     Active Substance: FLUTICASONE PROPIONATE
  3. ALBUTEROL [SALBUTAMOL SULFATE] [Concomitant]
     Active Substance: ALBUTEROL SULFATE
     Dosage: 2.5 MG/ 3 ML, Q4H
     Route: 055
  4. MIRALAX [Concomitant]
     Active Substance: POLYETHYLENE GLYCOL 3350
     Dosage: 17 GRAM POWDER, QPM
  5. CELEBREX [Concomitant]
     Active Substance: CELECOXIB
     Dosage: 100 MG, QPM
     Route: 048
  6. QUETIAPINE. [Concomitant]
     Active Substance: QUETIAPINE
     Route: 048
  7. PULMOZYME [Concomitant]
     Active Substance: DORNASE ALFA
     Dosage: 2.5 QPM
     Route: 055
  8. ESCITALOPRAM [Concomitant]
     Active Substance: ESCITALOPRAM OXALATE
     Dosage: 10 MILLIGRAM, QD
     Route: 048
  9. SINGULAIR [Concomitant]
     Active Substance: MONTELUKAST SODIUM
     Dosage: 10 MG, QPM
     Route: 048
  10. GABAPENTIN. [Concomitant]
     Active Substance: GABAPENTIN
     Dosage: 300 MG, BID
     Route: 048
  11. ZYRTEC [Concomitant]
     Active Substance: CETIRIZINE HYDROCHLORIDE
     Dosage: 10 MG, QHS
     Route: 048
  12. COLACE [Concomitant]
     Active Substance: DOCUSATE SODIUM
  13. METHYLPHENIDATE. [Concomitant]
     Active Substance: METHYLPHENIDATE
     Dosage: 20 MG, QD
  14. HUMALOG [Concomitant]
     Active Substance: INSULIN LISPRO
  15. CIPROFLOXACIN. [Concomitant]
     Active Substance: CIPROFLOXACIN
  16. FLUTICASONE. [Concomitant]
     Active Substance: FLUTICASONE
     Dosage: 1 SPRAY, EACH NOSTRIL, BID
  17. MELATONIN [Concomitant]
     Active Substance: MELATONIN
     Dosage: 5 MG, QHS
     Route: 048
  18. FERROUS SULFATE. [Concomitant]
     Active Substance: FERROUS SULFATE
     Dosage: 325 MG, BID
     Route: 048
  19. FLUTICASONE PROPIONATE;SALMETEROL [Concomitant]
     Dosage: 2 PUFF, BID
     Route: 055
  20. LIDOCAINE. [Concomitant]
     Active Substance: LIDOCAINE
     Route: 061
  21. CREON [Concomitant]
     Active Substance: PANCRELIPASE AMYLASE\PANCRELIPASE LIPASE\PANCRELIPASE PROTEASE
  22. DIPHENHYDRAMINE. [Concomitant]
     Active Substance: DIPHENHYDRAMINE
     Dosage: 50 MG TABLET, TID
     Route: 048
  23. ZANTAC [Concomitant]
     Active Substance: RANITIDINE HYDROCHLORIDE
     Dosage: 150 MG, BID
     Route: 048
  24. COLISTIN [Concomitant]
     Active Substance: COLISTIN
     Dosage: 150 MG, BID
     Route: 055
  25. SYMDEKO [Suspect]
     Active Substance: IVACAFTOR\TEZACAFTOR
     Indication: CYSTIC FIBROSIS
     Dosage: TEZACAFTOR 100 MG, IVACAFTOR 150 MG QAM; IVACAFTOR 150 MG QPM
     Route: 048
     Dates: start: 20180727
  26. LANTUS [Concomitant]
     Active Substance: INSULIN GLARGINE
  27. CONCERTA [Concomitant]
     Active Substance: METHYLPHENIDATE HYDROCHLORIDE

REACTIONS (1)
  - Hospitalisation [Unknown]

NARRATIVE: CASE EVENT DATE: 201901
